FAERS Safety Report 10661099 (Version 1)
Quarter: 2014Q4

REPORT INFORMATION
  Report Type: Report from Study
  Country: US (occurrence: US)
  Receive Date: 20141218
  Receipt Date: 20141218
  Transmission Date: 20150529
  Serious: Yes (Hospitalization)
  Sender: FDA-Public Use
  Company Number: US-PFIZER INC-2014340583

PATIENT
  Age: 77 Year
  Sex: Male
  Weight: 118 kg

DRUGS (2)
  1. TORISEL [Suspect]
     Active Substance: TEMSIROLIMUS
     Dosage: 20 MG, CYCLIC (28 DAY CYCLE), OVER 30 MINUTES WEEKLY
     Route: 042
     Dates: start: 20140516, end: 20141113
  2. LENALIDOMIDE [Suspect]
     Active Substance: LENALIDOMIDE
     Dosage: 10 MG, CYCLIC (28 DAY CYCLE), ONCE DAILY ON DAYS 1-21
     Route: 048
     Dates: start: 20140516, end: 20141119

REACTIONS (1)
  - Cholecystitis [Not Recovered/Not Resolved]

NARRATIVE: CASE EVENT DATE: 20141124
